FAERS Safety Report 10082182 (Version 1)
Quarter: 2014Q2

REPORT INFORMATION
  Report Type: Spontaneous
  Country: US (occurrence: US)
  Receive Date: 20140416
  Receipt Date: 20140416
  Transmission Date: 20141212
  Serious: Yes (Other)
  Sender: FDA-Public Use
  Company Number: US-AMGEN-USASP2014026068

PATIENT
  Age: 78 Year
  Sex: Male

DRUGS (1)
  1. XGEVA [Suspect]
     Indication: PROPHYLAXIS
     Dosage: UNK
     Route: 065
     Dates: start: 201204

REACTIONS (1)
  - Osteonecrosis of jaw [Unknown]
